FAERS Safety Report 7760619 (Version 11)
Quarter: 2013Q4

REPORT INFORMATION
  Report Type: Spontaneous
  Country: US (occurrence: US)
  Receive Date: 20110114
  Receipt Date: 20131118
  Transmission Date: 20140711
  Serious: Yes (Death, Hospitalization)
  Sender: FDA-Public Use
  Company Number: US-JNJFOC-20110100841

PATIENT
  Age: 40 Year
  Sex: Male
  Weight: 89 kg

DRUGS (12)
  1. EXTRA STRENGTH TYLENOL [Suspect]
     Indication: EAR PAIN
     Dosage: INGESTED 40 PILLS IN 2 DAYS 1500MG-2000MG EVERY 3 HOURS
     Route: 048
     Dates: start: 200804, end: 20080509
  2. EXTRA STRENGTH TYLENOL [Suspect]
     Indication: HEADACHE
     Dosage: INGESTED 40 PILLS IN 2 DAYS 1500MG-2000MG EVERY 3 HOURS
     Route: 048
     Dates: start: 200804, end: 20080509
  3. DHEA [Suspect]
     Indication: PRODUCT USED FOR UNKNOWN INDICATION
  4. TESTOSTERONE [Suspect]
     Indication: PRODUCT USED FOR UNKNOWN INDICATION
  5. ADVIL [Concomitant]
     Indication: HEADACHE
  6. SUDAFED [Concomitant]
     Indication: EAR PAIN
  7. SUDAFED [Concomitant]
     Indication: HEADACHE
  8. BOTOX [Concomitant]
     Indication: SKIN LESION
  9. CREATINE [Concomitant]
  10. GLUTAMINE [Concomitant]
  11. B12 [Concomitant]
  12. VITAMIN [Concomitant]

REACTIONS (5)
  - Renal failure acute [Recovering/Resolving]
  - Accidental overdose [Recovering/Resolving]
  - Hepatic encephalopathy [Recovering/Resolving]
  - Acute hepatic failure [Recovering/Resolving]
  - Rhabdomyolysis [Recovered/Resolved]
